FAERS Safety Report 26165953 (Version 1)
Quarter: 2025Q4

REPORT INFORMATION
  Report Type: Spontaneous
  Country: JP (occurrence: JP)
  Receive Date: 20251216
  Receipt Date: 20251216
  Transmission Date: 20260118
  Serious: Yes (Other)
  Sender: Harrow Health
  Company Number: JP-Novartis Pharma-NVSJ2025JP011675

PATIENT

DRUGS (3)
  1. VIGAMOX [Suspect]
     Active Substance: MOXIFLOXACIN HYDROCHLORIDE
     Indication: Postoperative care
     Route: 047
  2. Rinderon [Concomitant]
  3. BROMFENAC SODIUM [Concomitant]
     Active Substance: BROMFENAC SODIUM

REACTIONS (2)
  - Deafness [Unknown]
  - Ear discomfort [Unknown]
